FAERS Safety Report 4946703-1 (Version None)
Quarter: 2006Q1

REPORT INFORMATION
  Report Type: 
  Country: None (occurrence: None)
  Receive Date: 20060317
  Receipt Date: 20050930
  Transmission Date: 20060701
  Serious: Yes (Hospitalization)
  Sender: FDA-Public Use
  Company Number: US-MERCK-0510USA00199

PATIENT
  Age: 48 Year
  Sex: Male
  Weight: 108 kg

DRUGS (2)
  1. VIOXX [Suspect]
     Indication: ARTHRITIS
     Route: 048
     Dates: start: 20011108, end: 20031214
  2. VIOXX [Suspect]
     Indication: PAIN
     Route: 048
     Dates: start: 20011108, end: 20031214

REACTIONS (4)
  - CYST [None]
  - GASTROOESOPHAGEAL REFLUX DISEASE [None]
  - MYOCARDIAL INFARCTION [None]
  - UMBILICAL HERNIA [None]
